FAERS Safety Report 5327390-X (Version None)
Quarter: 2007Q2

REPORT INFORMATION
  Report Type: 
  Country: None (occurrence: None)
  Receive Date: 20070511
  Receipt Date: 20070503
  Transmission Date: 20071010
  Serious: Yes (Death)
  Sender: FDA-Public Use
  Company Number: 163-20785-07040526

PATIENT
  Age: 66 Year
  Sex: Female

DRUGS (1)
  1. THALIDOMIDE [Suspect]
     Indication: MULTIPLE MYELOMA
     Dosage: 400 MG, QHS, ORAL
     Route: 048
     Dates: start: 20070209, end: 20070101

REACTIONS (2)
  - BACTERIAL SEPSIS [None]
  - DISSEMINATED INTRAVASCULAR COAGULATION [None]
